FAERS Safety Report 9004692 (Version 1)
Quarter: 2013Q1

REPORT INFORMATION
  Report Type: Spontaneous
  Country: US (occurrence: None)
  Receive Date: 20130103
  Receipt Date: 20130103
  Transmission Date: 20140127
  Serious: Yes (Other)
  Sender: FDA-Public Use
  Company Number: None

PATIENT
  Age: 66 Year
  Sex: Male
  Weight: 77.57 kg

DRUGS (1)
  1. ATORVASTATIN [Suspect]
     Route: 048

REACTIONS (4)
  - Product substitution issue [None]
  - Diarrhoea [None]
  - Product quality issue [None]
  - Product contamination physical [None]
